FAERS Safety Report 19057404 (Version 3)
Quarter: 2022Q1

REPORT INFORMATION
  Report Type: Report from Study
  Country: US (occurrence: US)
  Receive Date: 20210325
  Receipt Date: 20220309
  Transmission Date: 20220423
  Serious: Yes (Hospitalization)
  Sender: FDA-Public Use
  Company Number: US-009507513-2101USA006903

PATIENT
  Sex: Female
  Weight: 115.64 kg

DRUGS (1)
  1. ASMANEX [Suspect]
     Active Substance: MOMETASONE FUROATE
     Indication: Asthma
     Dosage: 2 PUFFS, TWICE A DAY
     Dates: start: 20201223

REACTIONS (7)
  - Asthma [Unknown]
  - COVID-19 [Not Recovered/Not Resolved]
  - Device malfunction [Recovered/Resolved]
  - Poor quality device used [Unknown]
  - Product taste abnormal [Unknown]
  - Circumstance or information capable of leading to medication error [Unknown]
  - Product dose omission issue [Unknown]

NARRATIVE: CASE EVENT DATE: 20200101
